FAERS Safety Report 16468152 (Version 2)
Quarter: 2019Q3

REPORT INFORMATION
  Report Type: Report from Study
  Country: CO (occurrence: CO)
  Receive Date: 20190624
  Receipt Date: 20190708
  Transmission Date: 20191004
  Serious: Yes (Death, Disabling)
  Sender: FDA-Public Use
  Company Number: PHHY2019CO144842

PATIENT
  Age: 60 Year
  Sex: Female

DRUGS (1)
  1. VOTRIENT [Suspect]
     Active Substance: PAZOPANIB HYDROCHLORIDE
     Indication: METASTATIC RENAL CELL CARCINOMA
     Dosage: 800 MG, QD
     Route: 048
     Dates: start: 201903, end: 201904

REACTIONS (5)
  - Death [Fatal]
  - Femur fracture [Unknown]
  - Decreased appetite [Unknown]
  - Pain [Unknown]
  - Diarrhoea [Unknown]

NARRATIVE: CASE EVENT DATE: 201905
